FAERS Safety Report 5212329-8 (Version None)
Quarter: 2006Q4

REPORT INFORMATION
  Report Type: 
  Country: None (occurrence: None)
  Receive Date: 20061130
  Receipt Date: 20051109
  Transmission Date: 20070319
  Serious: Yes (Disabling)
  Sender: FDA-Public Use
  Company Number: WAES 0508USA01555

PATIENT
  Age: 77 Year
  Sex: Female
  Weight: 58.9676 kg

DRUGS (4)
  1. FOSAMAX [Suspect]
     Indication: OSTEOPOROSIS PROPHYLAXIS
     Dosage: 70 MG/WKY/PO
     Route: 048
     Dates: start: 20041013, end: 20050805
  2. PRAVACHOL [Concomitant]
  3. TYLENOL ARTHRITIS EXTENDED RELIE [Concomitant]
  4. CALCIUM (UNSPECIFIED) (+) VITAMI [Concomitant]

REACTIONS (2)
  - OSTEONECROSIS [None]
  - PALATAL DISORDER [None]
